FAERS Safety Report 5848016-2 (Version None)
Quarter: 2008Q3

REPORT INFORMATION
  Report Type: 
  Country: None (occurrence: None)
  Receive Date: 20080818
  Receipt Date: 20080804
  Transmission Date: 20090109
  Serious: Yes (Hospitalization)
  Sender: FDA-Public Use
  Company Number: GB-AMGEN-UK275587

PATIENT
  Sex: Male
  Weight: 77.3 kg

DRUGS (2)
  1. PANITUMUMAB [Suspect]
     Indication: COLORECTAL CANCER
     Route: 042
     Dates: start: 20080403
  2. IRINOTECAN HCL [Suspect]
     Route: 042
     Dates: start: 20080403

REACTIONS (2)
  - LETHARGY [None]
  - RASH [None]
